FAERS Safety Report 9461609 (Version 1)
Quarter: 2013Q3

REPORT INFORMATION
  Report Type: Spontaneous
  Country: BR (occurrence: BR)
  Receive Date: 20130816
  Receipt Date: 20130816
  Transmission Date: 20140515
  Serious: Yes (Other)
  Sender: FDA-Public Use
  Company Number: BR-AMGEN-BRASP2013047381

PATIENT
  Age: 32 Year
  Sex: Female
  Weight: 74 kg

DRUGS (1)
  1. ENBREL [Suspect]
     Indication: RHEUMATOID ARTHRITIS
     Dosage: 50 MG, WEEKLY
     Route: 058
     Dates: start: 201004, end: 201303

REACTIONS (3)
  - Labyrinthitis [Recovered/Resolved]
  - Erysipelas [Unknown]
  - Vestibular disorder [Recovered/Resolved]
